FAERS Safety Report 5379593-6 (Version None)
Quarter: 2007Q3

REPORT INFORMATION
  Report Type: 
  Country: None (occurrence: None)
  Receive Date: 20070706
  Receipt Date: 20070703
  Transmission Date: 20080115
  Serious: Yes (Other)
  Sender: FDA-Public Use
  Company Number: US-RB-007156-07

PATIENT
  Sex: Female

DRUGS (1)
  1. SUBUTEX [Suspect]
     Dosage: PATIENT SNORTED AN UNKNOWN AMOUNT OF SUBUTEX.
     Route: 045
     Dates: start: 20070628, end: 20070628

REACTIONS (2)
  - DRUG WITHDRAWAL SYNDROME [None]
  - INTENTIONAL DRUG MISUSE [None]
